FAERS Safety Report 8110666-0 (Version None)
Quarter: 2012Q1

REPORT INFORMATION
  Report Type: 
  Country: None (occurrence: None)
  Receive Date: 20120201
  Receipt Date: 20120201
  Transmission Date: 20120608
  Serious: Yes (Hospitalization)
  Sender: FDA-Public Use
  Company Number: None

PATIENT
  Sex: Female
  Weight: 86.6 kg

DRUGS (2)
  1. TAXOL [Suspect]
     Dosage: 265 MG
  2. IFOSFAMIDE [Suspect]
     Dosage: 9300 MG

REACTIONS (3)
  - CONFUSIONAL STATE [None]
  - ABNORMAL BEHAVIOUR [None]
  - INCONTINENCE [None]
